FAERS Safety Report 8245738-3 (Version None)
Quarter: 2012Q1

REPORT INFORMATION
  Report Type: 
  Country: None (occurrence: None)
  Receive Date: 20120330
  Receipt Date: 20120323
  Transmission Date: 20120608
  Serious: No
  Sender: FDA-Public Use
  Company Number: US-BIOGENIDEC-2012BI010494

PATIENT
  Sex: Female

DRUGS (2)
  1. TYSABRI [Suspect]
     Indication: MULTIPLE SCLEROSIS
     Route: 042
     Dates: start: 20100929, end: 20110601
  2. AVONEX [Concomitant]
     Indication: MULTIPLE SCLEROSIS
     Route: 030
     Dates: start: 20010628

REACTIONS (6)
  - OSTEOARTHRITIS [None]
  - HYPERTENSION [None]
  - HEADACHE [None]
  - GASTRIC DISORDER [None]
  - NEUROGENIC BLADDER [None]
  - DEPRESSION [None]
